FAERS Safety Report 6403717-2 (Version None)
Quarter: 2009Q4

REPORT INFORMATION
  Report Type: 
  Country: None (occurrence: None)
  Receive Date: 20091013
  Receipt Date: 20090928
  Transmission Date: 20100525
  Serious: Yes (Other)
  Sender: FDA-Public Use
  Company Number: A-CH2009-27685

PATIENT
  Age: 27 Year
  Sex: Female

DRUGS (2)
  1. TRACLEER [Suspect]
     Indication: PULMONARY HYPERTENSION
     Dosage: 62.5 MG, BID, ORAL ; 125 MG, TID, ORAL
     Route: 048
     Dates: start: 20060201
  2. FUROSEMIDE [Concomitant]

REACTIONS (3)
  - DISEASE PROGRESSION [None]
  - LUNG TRANSPLANT [None]
  - PULMONARY VENO-OCCLUSIVE DISEASE [None]
